FAERS Safety Report 4814395-8 (Version None)
Quarter: 2005Q4

REPORT INFORMATION
  Report Type: 
  Country: None (occurrence: None)
  Receive Date: 20051028
  Receipt Date: 20050818
  Transmission Date: 20060501
  Serious: No
  Sender: FDA-Public Use
  Company Number: US-GLAXOSMITHKLINE-A0570847A

PATIENT
  Age: 60 Year
  Sex: Female

DRUGS (10)
  1. ADVAIR DISKUS 100/50 [Suspect]
     Indication: CHRONIC OBSTRUCTIVE PULMONARY DISEASE
     Route: 055
     Dates: start: 20050401
  2. UNKNOWN MEDICATION [Concomitant]
     Route: 065
  3. PENICILLIN [Concomitant]
  4. LOVASTATIN [Concomitant]
  5. HYDROCODONE [Concomitant]
  6. BENICAR [Concomitant]
  7. PROPOXYPHENE [Concomitant]
  8. DOXYCYCLINE [Concomitant]
     Route: 065
  9. HYDROCHLOROTHIAZIDE [Concomitant]
  10. TRIAZOLAM [Concomitant]
     Route: 065

REACTIONS (2)
  - DYSPNOEA [None]
  - PHARMACEUTICAL PRODUCT COMPLAINT [None]
